FAERS Safety Report 10672029 (Version 1)
Quarter: 2014Q4

REPORT INFORMATION
  Report Type: Spontaneous
  Country: US (occurrence: US)
  Receive Date: 20141223
  Receipt Date: 20141223
  Transmission Date: 20150529
  Serious: Yes (Other)
  Sender: FDA-Public Use
  Company Number: US-BAXTER-2014BAX072386

PATIENT
  Age: 42 Year
  Sex: Female

DRUGS (11)
  1. VANCOMYCIN INJECTION, USP [Suspect]
     Active Substance: VANCOMYCIN
     Route: 042
  2. CEFEPIME [Suspect]
     Active Substance: CEFEPIME\CEFEPIME HYDROCHLORIDE
     Route: 040
  3. CEFEPIME [Suspect]
     Active Substance: CEFEPIME\CEFEPIME HYDROCHLORIDE
     Route: 040
  4. TOBRAMYCIN. [Suspect]
     Active Substance: TOBRAMYCIN
     Indication: PRODUCT USED FOR UNKNOWN INDICATION
     Route: 040
  5. LINEZOLID. [Suspect]
     Active Substance: LINEZOLID
     Indication: CNS VENTRICULITIS
     Route: 040
  6. LIPOSOMAL AMPHOTERICIN-B [Suspect]
     Active Substance: AMPHOTERICIN B
     Indication: CNS VENTRICULITIS
     Route: 040
  7. CEFEPIME [Suspect]
     Active Substance: CEFEPIME\CEFEPIME HYDROCHLORIDE
     Indication: CNS VENTRICULITIS
     Route: 040
  8. MEROPENEM. [Suspect]
     Active Substance: MEROPENEM
     Indication: CNS VENTRICULITIS
     Route: 040
  9. VANCOMYCIN INJECTION, USP [Suspect]
     Active Substance: VANCOMYCIN
     Indication: CNS VENTRICULITIS
     Route: 042
  10. FLUCONAZOLE INJECTION, USP [Suspect]
     Active Substance: FLUCONAZOLE
     Indication: CYSTITIS
     Route: 040
  11. CEFAZOLIN INJECTION [Suspect]
     Active Substance: CEFAZOLIN
     Indication: PROPHYLAXIS
     Route: 040

REACTIONS (8)
  - Neurological symptom [Recovered/Resolved]
  - Hypotension [Recovered/Resolved]
  - Urinary tract infection [Recovered/Resolved]
  - Acute kidney injury [Recovered/Resolved]
  - Leukocytosis [Recovered/Resolved]
  - Vomiting projectile [Recovered/Resolved]
  - Pyrexia [Recovered/Resolved]
  - Tenderness [Recovered/Resolved]
